FAERS Safety Report 5662883-7 (Version None)
Quarter: 2008Q1

REPORT INFORMATION
  Report Type: 
  Country: None (occurrence: None)
  Receive Date: 20080313
  Receipt Date: 20080304
  Transmission Date: 20080703
  Serious: Yes (Other)
  Sender: FDA-Public Use
  Company Number: US-ASTRAZENECA-2008UW04471

PATIENT
  Age: 44 Year
  Sex: Female
  Weight: 67.1 kg

DRUGS (2)
  1. CRESTOR [Suspect]
     Indication: BLOOD CHOLESTEROL
     Route: 048
  2. ZOLOFT [Concomitant]

REACTIONS (4)
  - ARTHRALGIA [None]
  - ASTHENIA [None]
  - HEPATIC STEATOSIS [None]
  - MYALGIA [None]
